FAERS Safety Report 8112229 (Version 2)
Quarter: 2012Q4

REPORT INFORMATION
  Report Type: Spontaneous
  Country: US (occurrence: None)
  Receive Date: 20110818
  Receipt Date: 20120814
  Transmission Date: 20130627
  Serious: Yes (Hospitalization, Other)
  Sender: FDA-Public Use
  Company Number: LIP 11011

PATIENT
  Age: 64 Year
  Sex: Female
  Weight: 49.8 kg

DRUGS (1)
  1. LIPOFEN [Suspect]
     Indication: BLOOD CHOLESTEROL INCREASED
     Dates: start: 201105, end: 20110726

REACTIONS (2)
  - ACUTE PROMYELOCYTIC LEUKAEMIA [None]
  - PANCYTOPENIA [None]
